FAERS Safety Report 4413869-1 (Version None)
Quarter: 2004Q3

REPORT INFORMATION
  Report Type: 
  Country: None (occurrence: None)
  Receive Date: 20040803
  Receipt Date: 20040630
  Transmission Date: 20050211
  Serious: Yes (Other)
  Sender: FDA-Public Use
  Company Number: PHEH2004US07177

PATIENT
  Age: 54 Year
  Sex: Female

DRUGS (6)
  1. ZOMETA [Suspect]
     Indication: METASTASES TO BONE
     Dosage: 4 MG EVERY MONTH
     Route: 042
     Dates: start: 20020301
  2. ARIMIDEX [Concomitant]
     Indication: BREAST CANCER
     Dosage: 1 MG, UNK
     Dates: start: 20020101
  3. LIPITOR [Concomitant]
     Indication: HYPERCHOLESTEROLAEMIA
     Dosage: 40 MG, UNK
     Dates: start: 20010101
  4. VITAMIN E [Concomitant]
  5. NIACIN [Concomitant]
  6. CALCIUM WITH VITAMIN D [Concomitant]

REACTIONS (3)
  - BONE OPERATION [None]
  - IMPAIRED HEALING [None]
  - PATHOLOGICAL FRACTURE [None]
